FAERS Safety Report 8765479 (Version 1)
Quarter: 2012Q4

REPORT INFORMATION
  Report Type: 
  Country: FR (occurrence: FR)
  Receive Date: 20120903
  Receipt Date: 20120903
  Transmission Date: 20130627
  Serious: Yes (Hospitalization)
  Sender: FDA-Public Use
  Company Number: FR-PFIZER INC-2012209489

PATIENT
  Age: 93 Year
  Sex: Male

DRUGS (8)
  1. LYRICA [Suspect]
     Dosage: 75 mg, 3x/day
     Route: 048
     Dates: start: 201203, end: 20120809
  2. RIVOTRIL [Suspect]
     Dosage: 3 Gtt, 2x/day
     Route: 048
     Dates: end: 20120809
  3. ZOFENIL [Concomitant]
     Dosage: 15 mg, 1x/day
     Route: 048
  4. SELOKEN [Concomitant]
     Dosage: 50 mg, 2x/day
     Route: 048
  5. KARDEGIC [Concomitant]
     Dosage: 75 mg, 1x/day
     Route: 048
  6. LASILIX [Concomitant]
     Dosage: 40 mg, 1x/day
     Route: 048
  7. TAHOR [Concomitant]
     Dosage: 1 DF, 1x/day
     Route: 048
  8. ZANIDIP [Concomitant]
     Dosage: 10 mg, 1x/day
     Route: 048

REACTIONS (3)
  - Oxygen saturation decreased [Recovered/Resolved]
  - Somnolence [Recovered/Resolved]
  - Renal failure acute [Recovered/Resolved]
